FAERS Safety Report 12092839 (Version 1)
Quarter: 2016Q1

REPORT INFORMATION
  Report Type: Report from Study
  Country: US (occurrence: US)
  Receive Date: 20160219
  Receipt Date: 20160219
  Transmission Date: 20160526
  Serious: Yes (Death)
  Sender: FDA-Public Use
  Company Number: PHEH2016US004062

PATIENT
  Sex: Male

DRUGS (1)
  1. PROMACTA [Suspect]
     Active Substance: ELTROMBOPAG OLAMINE
     Indication: NON-HODGKIN^S LYMPHOMA
     Dosage: 50 MG, QD
     Route: 048

REACTIONS (2)
  - Product use issue [Unknown]
  - Non-Hodgkin^s lymphoma [Fatal]
